FAERS Safety Report 4892515-7 (Version None)
Quarter: 2006Q1

REPORT INFORMATION
  Report Type: 
  Country: None (occurrence: None)
  Receive Date: 20060126
  Receipt Date: 20060116
  Transmission Date: 20060701
  Serious: Yes (Life-Threatening, Hospitalization)
  Sender: FDA-Public Use
  Company Number: JP-BRISTOL-MYERS SQUIBB COMPANY-13250451

PATIENT
  Age: 71 Year
  Sex: Female

DRUGS (3)
  1. PARAPLATIN [Suspect]
     Indication: CERVIX CARCINOMA
     Dosage: 190 MG/D 11-NOV-2005 TO 25-NOV-2005, 200 MG/D 02-DEC-2005 TO 22-DEC-2005
     Route: 041
     Dates: start: 20051111, end: 20051222
  2. TAXOL [Suspect]
     Indication: CERVIX CARCINOMA
     Route: 041
     Dates: start: 20051111, end: 20051222
  3. MAGCOROL [Suspect]
     Indication: CERVIX CARCINOMA
     Route: 048
     Dates: start: 20051226, end: 20051226

REACTIONS (3)
  - BONE MARROW FAILURE [None]
  - LARGE INTESTINE PERFORATION [None]
  - RENAL FAILURE [None]
